FAERS Safety Report 4361628-0 (Version None)
Quarter: 2004Q2

REPORT INFORMATION
  Report Type: 
  Country: None (occurrence: None)
  Receive Date: 20040521
  Receipt Date: 20040413
  Transmission Date: 20050107
  Serious: No
  Sender: FDA-Public Use
  Company Number: US-GLAXOSMITHKLINE-A0506942A

PATIENT
  Sex: Female

DRUGS (3)
  1. WELLBUTRIN XL [Suspect]
     Route: 048
  2. ADVAIR DISKUS 100/50 [Concomitant]
  3. FLOVENT [Concomitant]

REACTIONS (1)
  - MUCOUS MEMBRANE DISORDER [None]
